FAERS Safety Report 5794665-X (Version None)
Quarter: 2008Q2

REPORT INFORMATION
  Report Type: 
  Country: None (occurrence: None)
  Receive Date: 20080627
  Receipt Date: 20080627
  Transmission Date: 20081010
  Serious: No
  Sender: FDA-Public Use
  Company Number: None

PATIENT
  Age: 51 Year
  Sex: Male
  Weight: 92 kg

DRUGS (2)
  1. MIDAZOLAM HCL [Suspect]
     Indication: SEDATIVE THERAPY
     Dosage: 1MG X1  IV
     Route: 042
     Dates: start: 20080618
  2. FENTANYL [Concomitant]

REACTIONS (2)
  - BLOOD PRESSURE DECREASED [None]
  - RESPIRATORY DISTRESS [None]
